FAERS Safety Report 18446054 (Version 1)
Quarter: 2020Q4

REPORT INFORMATION
  Report Type: Spontaneous
  Country: US (occurrence: US)
  Receive Date: 20201030
  Receipt Date: 20201030
  Transmission Date: 20210114
  Serious: Yes (Hospitalization)
  Sender: FDA-Public Use
  Company Number: None

PATIENT
  Age: 74 Year
  Sex: Female

DRUGS (22)
  1. ILEVRO DRO 0.3% OP [Concomitant]
     Dates: start: 20190822
  2. METOPROLOL SUCCINATE TAB 25MG ER [Concomitant]
     Dates: start: 20191231
  3. ESCITALOPRAM 10MG [Concomitant]
     Active Substance: ESCITALOPRAM OXALATE
     Dates: start: 20191002
  4. MAGNESIUM OX TAB 400MG [Concomitant]
     Dates: start: 20200704
  5. MELOXICAM 15MG [Concomitant]
     Active Substance: MELOXICAM
     Dates: start: 20200618
  6. NEBUSAL 3% 4ML VIAL [Concomitant]
     Dates: start: 20170925
  7. PANTOPRAZOLE TAB 40MG [Concomitant]
     Dates: start: 20200929
  8. AMITRIPTYLINE 25MG [Concomitant]
     Active Substance: AMITRIPTYLINE
     Dates: start: 20190910
  9. POT CHLORIDE TAB 10MEQ ER [Concomitant]
     Dates: start: 20200211
  10. CIPROFLOXACIN. [Concomitant]
     Active Substance: CIPROFLOXACIN
     Dates: start: 20200824
  11. TOBRAMYCIN INHALATION SOLUTION [Suspect]
     Active Substance: TOBRAMYCIN
     Indication: BRONCHIECTASIS
     Route: 055
     Dates: start: 20160307
  12. AZITHROMYCIN 250MG [Concomitant]
     Active Substance: AZITHROMYCIN ANHYDROUS
     Dates: start: 20200119
  13. DUREZOL EMU 0.05% [Concomitant]
     Dates: start: 20190822
  14. RESTASIS EMU 0.05% [Concomitant]
     Dates: start: 20190620
  15. LORAZEPAM TAB 0.5MG [Concomitant]
     Dates: start: 20190627
  16. NITROFURANTIN CAP 100MG [Concomitant]
     Dates: start: 20191118
  17. DIAZEPAM 5MG [Concomitant]
     Active Substance: DIAZEPAM
     Dates: start: 20190926
  18. DICYCLOMINE 20MG [Concomitant]
     Dates: start: 20190924
  19. FAMOTIDINE 40MG [Concomitant]
     Active Substance: FAMOTIDINE
     Dates: start: 20201008
  20. IBUPROFEN 600MG [Concomitant]
     Active Substance: IBUPROFEN
     Dates: start: 20190828
  21. METHYLPRED TAB 4MG [Concomitant]
     Dates: start: 20171130
  22. PREDNISONE TAB 10MG [Concomitant]
     Active Substance: PREDNISONE
     Dates: start: 20190821

REACTIONS (1)
  - Bronchial disorder [None]

NARRATIVE: CASE EVENT DATE: 20201023
